FAERS Safety Report 14201916 (Version 6)
Quarter: 2025Q2

REPORT INFORMATION
  Report Type: Spontaneous
  Country: BE (occurrence: BE)
  Receive Date: 20171117
  Receipt Date: 20250625
  Transmission Date: 20250717
  Serious: Yes (Death, Hospitalization, Other)
  Sender: SANOFI AVENTIS
  Company Number: BE-EMA-DD-20171229-SANDEVHP-112003

PATIENT
  Age: 27 Year
  Sex: Female

DRUGS (9)
  1. ANTI-THYMOCYTE GLOBULIN (RABBIT) NOS [Suspect]
     Active Substance: LAPINE T-LYMPHOCYTE IMMUNE GLOBULIN
     Indication: Bone marrow conditioning regimen
  2. FLUDARABINE PHOSPHATE [Suspect]
     Active Substance: FLUDARABINE PHOSPHATE
     Indication: Bone marrow conditioning regimen
  3. CYCLOPHOSPHAMIDE [Suspect]
     Active Substance: CYCLOPHOSPHAMIDE
     Indication: Bone marrow conditioning regimen
     Route: 041
  4. MYCOPHENOLATE MOFETIL [Suspect]
     Active Substance: MYCOPHENOLATE MOFETIL
     Indication: Prophylaxis against graft versus host disease
  5. VALGANCICLOVIR HYDROCHLORIDE [Suspect]
     Active Substance: VALGANCICLOVIR HYDROCHLORIDE
     Indication: Cytomegalovirus infection reactivation
  6. BUSULFAN [Suspect]
     Active Substance: BUSULFAN
     Indication: Bone marrow conditioning regimen
  7. TACROLIMUS [Suspect]
     Active Substance: TACROLIMUS
     Indication: Prophylaxis against graft versus host disease
  8. POSACONAZOLE [Suspect]
     Active Substance: POSACONAZOLE
     Indication: Oral candidiasis
  9. FOSCAVIR [Concomitant]
     Active Substance: FOSCARNET SODIUM

REACTIONS (23)
  - Hepatic failure [Fatal]
  - Venous haemorrhage [Fatal]
  - Disseminated intravascular coagulation [Fatal]
  - Hepatic necrosis [Fatal]
  - Adenoviral hepatitis [Fatal]
  - Rash [Fatal]
  - Diarrhoea [Fatal]
  - Hepatomegaly [Fatal]
  - Hepatic pain [Fatal]
  - Oedema [Fatal]
  - Pyrexia [Fatal]
  - Hepatic cytolysis [Fatal]
  - Cholestasis [Fatal]
  - Venoocclusive liver disease [Unknown]
  - Ascites [Unknown]
  - Pancytopenia [Unknown]
  - Neutropenia [Unknown]
  - Myelosuppression [Unknown]
  - Cytomegalovirus infection reactivation [Unknown]
  - Staphylococcal sepsis [Unknown]
  - Oral candidiasis [Unknown]
  - Pain [Unknown]
  - Toxicity to various agents [Unknown]
